FAERS Safety Report 5917966-0 (Version None)
Quarter: 2008Q4

REPORT INFORMATION
  Report Type: 
  Country: None (occurrence: None)
  Receive Date: 20081014
  Receipt Date: 20081002
  Transmission Date: 20090506
  Serious: Yes (Death, Life-Threatening, Hospitalization, Disabling, Other)
  Sender: FDA-Public Use
  Company Number: FR-PFIZER INC-2008083241

PATIENT
  Sex: Female

DRUGS (4)
  1. GENOTONORM [Suspect]
     Indication: HYPOPITUITARISM
     Dates: start: 20021206, end: 20080201
  2. LEVOTHYROX [Concomitant]
  3. HYDROCORTISONE [Concomitant]
  4. TRINITRINE [Concomitant]

REACTIONS (2)
  - MENINGIOMA [None]
  - NEOPLASM RECURRENCE [None]
